FAERS Safety Report 5701643-5 (Version None)
Quarter: 2008Q2

REPORT INFORMATION
  Report Type: 
  Country: None (occurrence: None)
  Receive Date: 20080411
  Receipt Date: 20080402
  Transmission Date: 20081010
  Serious: Yes (Death)
  Sender: FDA-Public Use
  Company Number: CA-RANBAXY-2008RR-14213

PATIENT

DRUGS (10)
  1. TENOFOVIR DISOPROXIL FUMARATE [Suspect]
     Indication: HIV INFECTION
     Dosage: UNK
  2. NAPROXEN TABLETS BP 250MG [Suspect]
     Indication: BACK PAIN
     Dosage: 375 MG, TID
  3. LOPINAVIR AND RITONAVIR [Concomitant]
     Indication: HIV INFECTION
  4. DIDANOSINE [Concomitant]
     Indication: HIV INFECTION
     Dosage: 250 MG, UNK
  5. FUROSEMID BASICS 40 MG TABLETTE [Suspect]
  6. SPIRONOLACTONE RPG 75 MG COMPRIME PELLICULE [Suspect]
  7. HYDROMORPHONE HCL [Concomitant]
  8. QUININE [Concomitant]
  9. OMEPRAZOLE [Concomitant]
  10. DIMENHYDRINATE [Concomitant]

REACTIONS (1)
  - RENAL FAILURE [None]
